FAERS Safety Report 20407197 (Version 1)
Quarter: 2022Q1

REPORT INFORMATION
  Report Type: Spontaneous
  Country: US (occurrence: US)
  Receive Date: 20220131
  Receipt Date: 20220131
  Transmission Date: 20220423
  Serious: No
  Sender: FDA-Public Use
  Company Number: US-PERRIGO-21US005280

PATIENT
  Age: 68 Year
  Sex: Male
  Weight: 90.703 kg

DRUGS (3)
  1. PERMETHRIN [Suspect]
     Active Substance: PERMETHRIN
     Indication: Flea infestation
     Dosage: 120 ML, SINGLE
     Route: 061
     Dates: start: 20210415, end: 20210415
  2. METFORMIN [Concomitant]
     Active Substance: METFORMIN HYDROCHLORIDE
     Indication: Diabetes mellitus
     Dosage: UNK
     Route: 065
     Dates: start: 202004
  3. ATORVASTATIN [Concomitant]
     Active Substance: ATORVASTATIN
     Indication: Blood cholesterol increased
     Dosage: UNK
     Route: 065
     Dates: start: 2016

REACTIONS (2)
  - Application site pain [Recovered/Resolved]
  - Off label use [Recovered/Resolved]

NARRATIVE: CASE EVENT DATE: 20210415
